FAERS Safety Report 15351965 (Version 2)
Quarter: 2018Q3

REPORT INFORMATION
  Report Type: Spontaneous
  Country: FR (occurrence: FR)
  Receive Date: 20180905
  Receipt Date: 20180907
  Transmission Date: 20181010
  Serious: Yes (Death, Congenital Anomaly)
  Sender: FDA-Public Use
  Company Number: FR-PFIZER INC-2018355600

PATIENT

DRUGS (2)
  1. EVIPLERA [Suspect]
     Active Substance: EMTRICITABINE\RILPIVIRINE\TENOFOVIR DISOPROXIL FUMARATE
     Indication: PROPHYLAXIS AGAINST HIV INFECTION
     Dosage: 1 DF, 1X/DAY
     Route: 064
     Dates: start: 20180313, end: 20180415
  2. AZITHROMYCINE [Suspect]
     Active Substance: AZITHROMYCIN DIHYDRATE
     Indication: PROPHYLAXIS AGAINST HIV INFECTION
     Dosage: 1 G, 1X/DAY
     Route: 064
     Dates: start: 20180315

REACTIONS (3)
  - Limb deformity [Fatal]
  - Maternal exposure during pregnancy [Fatal]
  - Foetal malformation [Fatal]

NARRATIVE: CASE EVENT DATE: 20180620
